FAERS Safety Report 7281011-8 (Version None)
Quarter: 2011Q1

REPORT INFORMATION
  Report Type: 
  Country: None (occurrence: None)
  Receive Date: 20110208
  Receipt Date: 20110131
  Transmission Date: 20110831
  Serious: Yes (Death)
  Sender: FDA-Public Use
  Company Number: CHPA2010FR18801

PATIENT
  Age: 18 Month
  Sex: Male

DRUGS (1)
  1. SCOPOLAMINE [Suspect]
     Indication: SALIVARY HYPERSECRETION
     Dosage: 0.25 DF, Q72H
     Route: 061
     Dates: end: 20101223

REACTIONS (5)
  - INCORRECT DOSE ADMINISTERED [None]
  - OFF LABEL USE [None]
  - OVERDOSE [None]
  - WRONG TECHNIQUE IN DRUG USAGE PROCESS [None]
  - CONCOMITANT DISEASE PROGRESSION [None]
